FAERS Safety Report 7396471-1 (Version None)
Quarter: 2011Q2

REPORT INFORMATION
  Report Type: 
  Country: None (occurrence: None)
  Receive Date: 20110406
  Receipt Date: 20101026
  Transmission Date: 20111010
  Serious: Yes (Hospitalization)
  Sender: FDA-Public Use
  Company Number: US-BAYER-201024709NA

PATIENT
  Sex: Female
  Weight: 93.424 kg

DRUGS (7)
  1. OCELLA [Suspect]
     Indication: PREMENSTRUAL SYNDROME
     Dosage: UNK
     Dates: start: 20081123, end: 20090101
  2. YAZ [Suspect]
     Dosage: UNK
     Dates: start: 20090120, end: 20090325
  3. FLEXERIL [Concomitant]
     Dosage: UNK
     Dates: start: 20080523
  4. YAZ [Suspect]
     Indication: PREMENSTRUAL SYNDROME
     Dosage: UNK
     Route: 048
     Dates: start: 20080917, end: 20081101
  5. NAPROSYN [Concomitant]
     Indication: THROMBOPHLEBITIS
     Dosage: UNK
     Route: 048
     Dates: start: 20090106
  6. ADVIL LIQUI-GELS [Concomitant]
     Dosage: UNK
     Dates: start: 20080501
  7. CLOMID [Concomitant]
     Dosage: UNK
     Dates: start: 20001101

REACTIONS (2)
  - PULMONARY EMBOLISM [None]
  - DEEP VEIN THROMBOSIS [None]
